FAERS Safety Report 7250282-6 (Version None)
Quarter: 2011Q1

REPORT INFORMATION
  Report Type: 
  Country: None (occurrence: None)
  Receive Date: 20110128
  Receipt Date: 20110124
  Transmission Date: 20110831
  Serious: Yes (Disabling, Other)
  Sender: FDA-Public Use
  Company Number: BR-ABBOTT-11P-020-0700576-00

PATIENT
  Sex: Female
  Weight: 90 kg

DRUGS (6)
  1. PURAN [Concomitant]
     Indication: THYROID DISORDER
     Route: 048
     Dates: start: 20090101
  2. CLORANA [Concomitant]
     Indication: DIURETIC THERAPY
     Route: 048
     Dates: start: 20010101
  3. HUMIRA [Suspect]
     Indication: RHEUMATOID ARTHRITIS
     Route: 058
     Dates: start: 20090101
  4. CAPTOPRIL [Concomitant]
     Indication: HYPERTENSION
     Route: 048
  5. METFORMIN [Concomitant]
     Indication: DIABETES MELLITUS
     Dosage: 1-2 TABS DAILY, 1 AFTER LUNCH AND DINNER
     Route: 048
     Dates: start: 20060101
  6. FOLIC ACID [Concomitant]
     Indication: ANTICOAGULANT THERAPY
     Route: 048
     Dates: start: 20030101

REACTIONS (3)
  - PAIN IN EXTREMITY [None]
  - VISUAL ACUITY REDUCED [None]
  - EYE INFECTION [None]
